FAERS Safety Report 7730524-0 (Version None)
Quarter: 2011Q3

REPORT INFORMATION
  Report Type: 
  Country: None (occurrence: None)
  Receive Date: 20110831
  Receipt Date: 20110822
  Transmission Date: 20111222
  Serious: Yes (Other)
  Sender: FDA-Public Use
  Company Number: GER/GER/11/0020778

PATIENT
  Age: 33 Year
  Sex: Female

DRUGS (2)
  1. CYTOTEC [Concomitant]
  2. FLUOXETINE [Suspect]
     Indication: DEPRESSION
     Dosage: 20 MG, ORAL
     Route: 048

REACTIONS (3)
  - MATERNAL EXPOSURE DURING PREGNANCY [None]
  - INDUCED LABOUR [None]
  - PREMATURE RUPTURE OF MEMBRANES [None]
